FAERS Safety Report 15891544 (Version 1)
Quarter: 2019Q1

REPORT INFORMATION
  Report Type: Spontaneous
  Country: US (occurrence: US)
  Receive Date: 20190130
  Receipt Date: 20190130
  Transmission Date: 20190417
  Serious: No
  Sender: FDA-Public Use
  Company Number: US-ALLERGAN-1837555US

PATIENT
  Sex: Female

DRUGS (1)
  1. VIIBRYD [Suspect]
     Active Substance: VILAZODONE HYDROCHLORIDE
     Indication: PRODUCT USED FOR UNKNOWN INDICATION
     Route: 065

REACTIONS (7)
  - Wrong technique in product usage process [Unknown]
  - Diarrhoea [Unknown]
  - Headache [Unknown]
  - Sensory disturbance [Unknown]
  - Abdominal pain upper [Unknown]
  - Hot flush [Unknown]
  - Nausea [Unknown]
